FAERS Safety Report 9813370 (Version 1)
Quarter: 2014Q1

REPORT INFORMATION
  Report Type: Spontaneous
  Country: US (occurrence: US)
  Receive Date: 20140113
  Receipt Date: 20140113
  Transmission Date: 20141002
  Serious: No
  Sender: FDA-Public Use
  Company Number: US-BAYER-2014-005223

PATIENT
  Age: 73 Year
  Sex: Male
  Weight: 126.98 kg

DRUGS (2)
  1. ALEVE CAPLET [Suspect]
     Indication: BACK PAIN
     Dosage: 2 DF, PRN
     Route: 048
  2. GLUCOSAMIN [Concomitant]

REACTIONS (1)
  - Liver function test abnormal [None]
